FAERS Safety Report 10236699 (Version 6)
Quarter: 2015Q2

REPORT INFORMATION
  Report Type: Spontaneous
  Country: US (occurrence: US)
  Receive Date: 20140613
  Receipt Date: 20150511
  Transmission Date: 20150821
  Serious: Yes (Hospitalization, Other)
  Sender: FDA-Public Use
  Company Number: US-GLAXOSMITHKLINE-A1070893A

PATIENT
  Age: 28 Year
  Sex: Female

DRUGS (9)
  1. WARFARIN [Concomitant]
     Active Substance: WARFARIN
  2. FLOLAN [Suspect]
     Active Substance: EPOPROSTENOL SODIUM
     Dosage: UNK
     Dates: start: 20140327
  3. FLOLAN [Suspect]
     Active Substance: EPOPROSTENOL SODIUM
     Indication: TOXICITY TO VARIOUS AGENTS
     Dosage: CONCENTRATION 45,000NG/ML; PUMP RATE 87 ML/DAY, VIAL STRENGTH 1.5 MG46 NG/KG/MIN, CONC: 60,000 [...]
     Route: 042
     Dates: start: 20140327
  4. FLOLAN [Suspect]
     Active Substance: EPOPROSTENOL SODIUM
     Dosage: 57 NG/KG/MIN
  5. ADCIRCA [Concomitant]
     Active Substance: TADALAFIL
  6. FLOLAN [Suspect]
     Active Substance: EPOPROSTENOL SODIUM
     Dosage: UNK
     Dates: start: 20140327
  7. FLOLAN [Suspect]
     Active Substance: EPOPROSTENOL SODIUM
     Dosage: 57 NG/KG/MIN
  8. FLOLAN [Suspect]
     Active Substance: EPOPROSTENOL SODIUM
     Indication: COR PULMONALE CHRONIC
     Dosage: UNK
     Dates: start: 20140327
  9. TRACLEER [Concomitant]
     Active Substance: BOSENTAN\BOSENTAN MONOHYDRATE

REACTIONS (9)
  - Blister [Recovered/Resolved]
  - Lung transplant [Unknown]
  - Cardiac failure [Recovered/Resolved]
  - Fluid retention [Recovering/Resolving]
  - Infusion site pruritus [Recovered/Resolved]
  - Infusion site erythema [Recovered/Resolved]
  - Hyperaesthesia [Recovered/Resolved]
  - Infusion site rash [Recovered/Resolved with Sequelae]
  - Acute kidney injury [Recovering/Resolving]

NARRATIVE: CASE EVENT DATE: 201412
